FAERS Safety Report 4811816-1 (Version None)
Quarter: 2005Q4

REPORT INFORMATION
  Report Type: 
  Country: None (occurrence: None)
  Receive Date: 20051026
  Receipt Date: 20051019
  Transmission Date: 20060501
  Serious: Yes (Hospitalization)
  Sender: FDA-Public Use
  Company Number: 2005078146

PATIENT
  Age: 80 Year
  Sex: Male

DRUGS (12)
  1. ZYRTEC [Suspect]
     Indication: PROPHYLAXIS
     Dosage: 10 MG (10 MG, 1 IN 1D), ORAL
     Route: 048
     Dates: start: 20050327, end: 20050328
  2. ATARAX [Suspect]
     Indication: PROPHYLAXIS
     Dosage: ONE DOSAGE FORM (1 IN 1 D), ORAL
     Route: 048
     Dates: start: 20050327, end: 20050328
  3. ALDACTAZINE TABLETS (SPIRONOLACTONE, ALTIZIDE) [Suspect]
     Indication: ILL-DEFINED DISORDER
     Dosage: 0.5 TABLET (1 IN 1 D)
  4. AK-FLOUR (FLUORESCEIN SODIUM) [Suspect]
     Indication: ANGIOGRAM
     Dosage: INTRVENOUS
     Route: 042
     Dates: start: 20050329, end: 20050329
  5. ALLOPURINOL [Suspect]
     Indication: ILL-DEFINED DISORDER
     Dosage: 300 MG (1 IN 1 D), ORAL
     Route: 048
  6. AMARYL [Suspect]
     Indication: ILL-DEFINED DISORDER
     Dosage: ONE DOAGE FORM (1 IN 1 D), ORAL
     Route: 048
  7. METOPROLOL TARTRATE [Concomitant]
  8. COVERSYL (PERINDOPRIL) [Concomitant]
  9. HYPERIUM (RILMENIDINE) [Concomitant]
  10. FONZYLANE (BUFLOMEDIL HYDROCHLORIDE) [Concomitant]
  11. XANAX [Concomitant]
  12. ATHYMIL (MIANSERIN HYDROCHLORIDE) [Concomitant]

REACTIONS (3)
  - CUTANEOUS VASCULITIS [None]
  - NECROSIS [None]
  - VASCULAR PURPURA [None]
